FAERS Safety Report 6678867-6 (Version None)
Quarter: 2010Q2

REPORT INFORMATION
  Report Type: 
  Country: None (occurrence: None)
  Receive Date: 20100412
  Receipt Date: 20100412
  Transmission Date: 20101027
  Serious: Yes (Life-Threatening)
  Sender: FDA-Public Use
  Company Number: None

PATIENT
  Age: 50 Year
  Sex: Female
  Weight: 79.3795 kg

DRUGS (9)
  1. AMBIEN [Suspect]
     Indication: INSOMNIA
     Dosage: 1 1/BEDTIME- PO  4 TO 6 MONTHS
     Route: 048
  2. LITHIUM [Concomitant]
  3. SYNTHROID [Concomitant]
  4. CELEBREX [Concomitant]
  5. SEROQUEL [Concomitant]
  6. DESIPRAMINE HCL [Concomitant]
  7. PROTONIX [Concomitant]
  8. TEMAZEPAM [Concomitant]
  9. XANAX [Concomitant]

REACTIONS (2)
  - SLEEP-RELATED EATING DISORDER [None]
  - SOMNAMBULISM [None]
